FAERS Safety Report 4755701-2 (Version None)
Quarter: 2005Q3

REPORT INFORMATION
  Report Type: 
  Country: None (occurrence: None)
  Receive Date: 20050829
  Receipt Date: 20050812
  Transmission Date: 20060218
  Serious: Yes (Other)
  Sender: FDA-Public Use
  Company Number: 2005114221

PATIENT
  Age: 23 Year
  Sex: Male
  Weight: 90.7194 kg

DRUGS (1)
  1. UNISOM SLEEPGELS (DIPHENHYDRAMINE) [Suspect]
     Indication: INSOMNIA
     Dosage: 10 SLEEPGELS ONCE, ORAL
     Route: 048
     Dates: start: 20050812, end: 20050812

REACTIONS (3)
  - DIZZINESS [None]
  - OVERDOSE [None]
  - SOMNOLENCE [None]
